FAERS Safety Report 22642479 (Version 1)
Quarter: 2023Q2

REPORT INFORMATION
  Report Type: Report from Study
  Country: US (occurrence: US)
  Receive Date: 20230626
  Receipt Date: 20230626
  Transmission Date: 20230721
  Serious: Yes (Other)
  Sender: FDA-Public Use
  Company Number: US-ABBVIE-5304798

PATIENT

DRUGS (1)
  1. RINVOQ [Suspect]
     Active Substance: UPADACITINIB
     Indication: Rheumatoid arthritis
     Dosage: FORM STRENGTH: 15 MILLIGRAM.?BY MOUTH ONE TIME A DAY
     Route: 048
     Dates: start: 20230502

REACTIONS (5)
  - Cyst [Unknown]
  - Fatigue [Unknown]
  - Chills [Unknown]
  - Musculoskeletal stiffness [Unknown]
  - Contusion [Unknown]

NARRATIVE: CASE EVENT DATE: 20230101
